FAERS Safety Report 6201696-4 (Version None)
Quarter: 2009Q2

REPORT INFORMATION
  Report Type: 
  Country: None (occurrence: None)
  Receive Date: 20090526
  Receipt Date: 20090518
  Transmission Date: 20091009
  Serious: Yes (Life-Threatening, Hospitalization)
  Sender: FDA-Public Use
  Company Number: DE-BAYER-200918180GPV

PATIENT
  Age: 30 Year
  Sex: Female
  Weight: 70 kg

DRUGS (1)
  1. MIRENA [Suspect]
     Indication: CONTRACEPTION
     Route: 015
     Dates: start: 20040615

REACTIONS (5)
  - ABORTION OF ECTOPIC PREGNANCY [None]
  - CARDIOVASCULAR DISORDER [None]
  - COMPLICATION OF DEVICE REMOVAL [None]
  - HAEMORRHAGE [None]
  - HAEMORRHAGIC ANAEMIA [None]
